FAERS Safety Report 7707675-X (Version None)
Quarter: 2011Q3

REPORT INFORMATION
  Report Type: 
  Country: None (occurrence: None)
  Receive Date: 20110824
  Receipt Date: 20110815
  Transmission Date: 20111222
  Serious: Yes (Disabling)
  Sender: FDA-Public Use
  Company Number: BR-BAYER-2011-074301

PATIENT
  Sex: Female

DRUGS (1)
  1. YASMIN [Suspect]
     Route: 048

REACTIONS (7)
  - ABDOMINAL PAIN [None]
  - RETCHING [None]
  - ASTHENIA [None]
  - ABDOMINAL PAIN UPPER [None]
  - HYPOPHAGIA [None]
  - DYSPEPSIA [None]
  - FEELING ABNORMAL [None]
